FAERS Safety Report 22031328 (Version 1)
Quarter: 2023Q1

REPORT INFORMATION
  Report Type: Spontaneous
  Country: DE (occurrence: DE)
  Receive Date: 20230223
  Receipt Date: 20230223
  Transmission Date: 20230418
  Serious: Yes (Other)
  Sender: FDA-Public Use
  Company Number: DE-AUCTA-000003

PATIENT
  Age: 55 Year
  Sex: Female

DRUGS (1)
  1. DEFERASIROX [Suspect]
     Active Substance: DEFERASIROX
     Indication: Iron overload
     Dosage: DAILY

REACTIONS (3)
  - Cholestasis [Recovered/Resolved]
  - Coombs negative haemolytic anaemia [Recovered/Resolved]
  - Cholelithiasis [Unknown]
